FAERS Safety Report 8968211 (Version 55)
Quarter: 2020Q2

REPORT INFORMATION
  Report Type: Report from Study
  Country: CA (occurrence: CA)
  Receive Date: 20121217
  Receipt Date: 20200609
  Transmission Date: 20200714
  Serious: Yes (Hospitalization, Other)
  Sender: FDA-Public Use
  Company Number: PHHY2012CA080227

PATIENT
  Age: 58 Year
  Sex: Female

DRUGS (5)
  1. SANDOSTATIN [Suspect]
     Active Substance: OCTREOTIDE ACETATE
     Indication: NEUROENDOCRINE TUMOUR
     Dosage: (TEST DOSE), ONCE/SINGLE
     Route: 058
     Dates: start: 2012, end: 2012
  2. DOMPERIDONE [Concomitant]
     Active Substance: DOMPERIDONE
     Indication: PRODUCT USED FOR UNKNOWN INDICATION
     Dosage: 10 MG, TID
     Route: 065
     Dates: start: 20150109, end: 20150128
  3. SANDOSTATIN LAR DEPOT [Suspect]
     Active Substance: OCTREOTIDE ACETATE
     Indication: NEUROENDOCRINE TUMOUR
     Dosage: 30 MG, QMO, EVERY 4 WEEKS
     Route: 030
     Dates: start: 20120817
  4. SANDOSTATIN LAR DEPOT [Suspect]
     Active Substance: OCTREOTIDE ACETATE
     Dosage: 30 MG, QMO, EVERY 4 WEEKS
     Route: 030
     Dates: start: 20180313
  5. PREVACID [Concomitant]
     Active Substance: LANSOPRAZOLE
     Indication: PRODUCT USED FOR UNKNOWN INDICATION
     Dosage: 30 MG, QD
     Route: 065

REACTIONS (38)
  - Hepatomegaly [Unknown]
  - Pyrexia [Unknown]
  - Bowel movement irregularity [Recovered/Resolved]
  - Injection site mass [Recovered/Resolved]
  - Vomiting [Unknown]
  - Faeces soft [Unknown]
  - Injection site infection [Recovering/Resolving]
  - Pain in extremity [Recovered/Resolved]
  - Injection site erythema [Recovered/Resolved]
  - Neuroendocrine tumour [Unknown]
  - Poor quality sleep [Unknown]
  - Injection site discharge [Unknown]
  - Small intestinal obstruction [Unknown]
  - Hypertension [Unknown]
  - Gastrooesophageal reflux disease [Unknown]
  - Musculoskeletal pain [Unknown]
  - Burning sensation [Unknown]
  - Blood pressure abnormal [Unknown]
  - Headache [Not Recovered/Not Resolved]
  - Injection site hyperaesthesia [Unknown]
  - Injection site pain [Recovered/Resolved]
  - Abdominal pain upper [Not Recovered/Not Resolved]
  - Biliary colic [Recovered/Resolved]
  - Malignant neoplasm progression [Unknown]
  - Injection site pustule [Recovered/Resolved]
  - Injection site discomfort [Recovered/Resolved]
  - Injection site reaction [Recovered/Resolved]
  - Injection site scab [Unknown]
  - Body temperature increased [Unknown]
  - Underdose [Unknown]
  - Gallbladder hypofunction [Unknown]
  - Hypoacusis [Unknown]
  - Gastrointestinal obstruction [Unknown]
  - Intestinal obstruction [Unknown]
  - Faeces discoloured [Unknown]
  - Frequent bowel movements [Recovered/Resolved]
  - Needle issue [Unknown]
  - Abdominal distension [Unknown]

NARRATIVE: CASE EVENT DATE: 20141203
